FAERS Safety Report 5734323-0 (Version None)
Quarter: 2008Q2

REPORT INFORMATION
  Report Type: 
  Country: None (occurrence: None)
  Receive Date: 20080507
  Receipt Date: 20080422
  Transmission Date: 20081010
  Serious: Yes (Death, Hospitalization)
  Sender: FDA-Public Use
  Company Number: A-NJ2007-18602

PATIENT
  Age: 67 Year
  Sex: Female

DRUGS (17)
  1. VENTAVIS [Suspect]
     Indication: PULMONARY HYPERTENSION
     Dosage: 2.5 UG, 6X/DAY, RESPIRATORY
     Route: 055
     Dates: start: 20071005, end: 20080101
  2. SILDENAFIL CITRATE [Concomitant]
  3. ZAROXYN (METOLAZONE) [Concomitant]
  4. ALPRAZOLAM [Concomitant]
  5. LAXIS (FUROSEMIDE) [Concomitant]
  6. MAGNESIUM OXIDE (MAGNESIUM OXIDE) [Concomitant]
  7. OXYGEN (OXYGEN) [Concomitant]
  8. POTASSIUM (POTASSIUM) [Concomitant]
  9. NYSTATIN [Concomitant]
  10. PREDNISONE TAB [Concomitant]
  11. ULTRAM [Concomitant]
  12. ALDACTONE [Concomitant]
  13. SINGULAIR [Concomitant]
  14. FEXOFENADINE HCL [Concomitant]
  15. BACTRIM DS (TRIMTHOPRIM, SULFAMETHOXAZOLE) [Concomitant]
  16. FEMARA [Concomitant]
  17. CALTRATE (CALCIUM CARBONATE) [Concomitant]

REACTIONS (8)
  - BURNING SENSATION [None]
  - COMPLICATIONS OF TRANSPLANTED LUNG [None]
  - DISEASE PROGRESSION [None]
  - GLOSSITIS [None]
  - LUNG TRANSPLANT [None]
  - OFF LABEL USE [None]
  - POST PROCEDURAL COMPLICATION [None]
  - PULMONARY HYPERTENSION [None]
